FAERS Safety Report 9504580 (Version 1)
Quarter: 2013Q3

REPORT INFORMATION
  Report Type: Spontaneous
  Country: US (occurrence: US)
  Receive Date: 20130906
  Receipt Date: 20130906
  Transmission Date: 20140515
  Serious: Yes (Other)
  Sender: FDA-Public Use
  Company Number: US-ASTRAZENECA-2013SE66765

PATIENT
  Age: 75 Year
  Sex: Male
  Weight: 65.3 kg

DRUGS (8)
  1. ATENOLOL [Suspect]
     Indication: ARRHYTHMIA
     Route: 048
     Dates: start: 1988
  2. NEXIUM [Suspect]
     Indication: GASTRIC CANCER
     Route: 048
     Dates: start: 201002
  3. DIGOXIN [Concomitant]
     Indication: ARRHYTHMIA
     Route: 048
     Dates: start: 1988
  4. WARFARIN [Concomitant]
     Indication: ARRHYTHMIA
     Route: 048
     Dates: start: 1988
  5. LEVODOPA [Concomitant]
     Indication: PARKINSON^S DISEASE
     Route: 048
     Dates: start: 2000
  6. TRIHEXYPHENIDYL [Concomitant]
     Indication: PARKINSON^S DISEASE
     Route: 048
     Dates: start: 2000
  7. B-COMPLEX VITAMIN [Concomitant]
     Indication: VITAMIN SUPPLEMENTATION
     Route: 048
     Dates: start: 201305
  8. MULTIVITAMIN [Concomitant]
     Indication: VITAMIN SUPPLEMENTATION
     Route: 048

REACTIONS (13)
  - Gastric cancer [Unknown]
  - Cataract [Recovered/Resolved]
  - Sciatica [Not Recovered/Not Resolved]
  - Increased tendency to bruise [Not Recovered/Not Resolved]
  - Gait disturbance [Not Recovered/Not Resolved]
  - Fall [Not Recovered/Not Resolved]
  - Dysstasia [Not Recovered/Not Resolved]
  - Pain in extremity [Not Recovered/Not Resolved]
  - Glaucoma [Unknown]
  - Helicobacter infection [Unknown]
  - Parkinson^s disease [Unknown]
  - Muscular weakness [Not Recovered/Not Resolved]
  - Off label use [Not Recovered/Not Resolved]
